FAERS Safety Report 9978393 (Version 1)
Quarter: 2014Q1

REPORT INFORMATION
  Report Type: Report from Study
  Country: US (occurrence: US)
  Receive Date: 20140306
  Receipt Date: 20140306
  Transmission Date: 20141002
  Serious: No
  Sender: FDA-Public Use
  Company Number: US-ABBVIE-13P-163-1170767-00

PATIENT
  Age: 60 Year
  Sex: Female

DRUGS (8)
  1. HUMIRA [Suspect]
     Indication: CROHN^S DISEASE
     Dates: start: 20131026, end: 20131026
  2. HUMIRA [Suspect]
     Dates: start: 20131027, end: 20131027
  3. HUMIRA [Suspect]
     Dates: start: 20131109, end: 20131109
  4. HUMIRA [Suspect]
  5. TYLENOL [Suspect]
     Indication: HEADACHE
  6. UNKNOWN MEDICATION [Concomitant]
     Indication: HYPERTENSION
  7. PROAIR [Concomitant]
     Indication: PRODUCT USED FOR UNKNOWN INDICATION
  8. SLEEPING MEDICATION [Concomitant]
     Indication: INSOMNIA
     Dosage: BEFORE BED

REACTIONS (9)
  - Stress [Not Recovered/Not Resolved]
  - Headache [Not Recovered/Not Resolved]
  - Respiratory tract infection [Not Recovered/Not Resolved]
  - Respiratory tract congestion [Not Recovered/Not Resolved]
  - Dyspnoea [Not Recovered/Not Resolved]
  - Dark circles under eyes [Not Recovered/Not Resolved]
  - Insomnia [Not Recovered/Not Resolved]
  - General physical health deterioration [Not Recovered/Not Resolved]
  - Pain [Not Recovered/Not Resolved]
